FAERS Safety Report 8603138-8 (Version None)
Quarter: 2012Q3

REPORT INFORMATION
  Report Type: 
  Country: None (occurrence: None)
  Receive Date: 20120817
  Receipt Date: 20120815
  Transmission Date: 20120928
  Serious: Yes (Life-Threatening, Hospitalization, Congenital Anomaly, Other)
  Sender: FDA-Public Use
  Company Number: GXKR2012DE002568

PATIENT

DRUGS (5)
  1. LEVOTHYROXINE SODIUM [Concomitant]
     Dosage: MATERNAL DOSE: 50 UG, QD
     Route: 064
  2. FOLIC ACID [Concomitant]
     Dosage: MATERNAL DOSE 0.4 MG, QD
     Route: 064
     Dates: start: 20110829, end: 20120405
  3. RAMIPRIL [Suspect]
     Indication: HYPERTENSION
     Dosage: MATERNAL DOSE: 2.5 MG, QD; 5 [MG/D ]/ UNTIL WEEK 12-14 ONLY 2.5 MG/D, THEN ELEVATION TO 5 MG/D
     Route: 064
  4. NEBIVOLOL HCL [Suspect]
     Indication: HYPERTENSION
     Dosage: MATERNAL DOSE 5 MG, QD
     Route: 064
  5. RAMIPRIL [Suspect]
     Dosage: MATERNAL DOSE 5 MG, QD
     Route: 064

REACTIONS (7)
  - RENAL FAILURE ACUTE [None]
  - SMALL FOR DATES BABY [None]
  - FOETAL EXPOSURE DURING PREGNANCY [None]
  - CRANIAL SUTURES WIDENING [None]
  - EXTREMITY CONTRACTURE [None]
  - RENAL APLASIA [None]
  - NEONATAL ANURIA [None]
